FAERS Safety Report 7034304-3 (Version None)
Quarter: 2010Q4

REPORT INFORMATION
  Report Type: 
  Country: None (occurrence: None)
  Receive Date: 20101008
  Receipt Date: 20100927
  Transmission Date: 20110411
  Serious: No
  Sender: FDA-Public Use
  Company Number: FI-ELI_LILLY_AND_COMPANY-FI201010000356

PATIENT
  Sex: Female

DRUGS (3)
  1. CYMBALTA [Suspect]
     Indication: NEURALGIA
     Dosage: 60 MG, UNK
     Dates: start: 20090201
  2. TRIPTYL [Concomitant]
     Dosage: 10 MG, UNK
  3. RIVATRIL [Concomitant]
     Dosage: 0.5 MG, UNK

REACTIONS (1)
  - YELLOW SKIN [None]
